FAERS Safety Report 7830758-0 (Version None)
Quarter: 2011Q4

REPORT INFORMATION
  Report Type: 
  Country: None (occurrence: None)
  Receive Date: 20111021
  Receipt Date: 20111012
  Transmission Date: 20120403
  Serious: Yes (Other)
  Sender: FDA-Public Use
  Company Number: US-GLAXOSMITHKLINE-A0845027A

PATIENT
  Age: 59 Year
  Sex: Male
  Weight: 120 kg

DRUGS (5)
  1. GLUCOPHAGE [Concomitant]
  2. ACCUPRIL [Concomitant]
  3. VYTORIN [Concomitant]
  4. AVANDIA [Suspect]
     Indication: DIABETES MELLITUS
     Dosage: 8MG PER DAY
     Route: 048
     Dates: start: 20040101, end: 20070101
  5. INSULIN [Concomitant]

REACTIONS (3)
  - PAIN IN EXTREMITY [None]
  - MOBILITY DECREASED [None]
  - CEREBROVASCULAR ACCIDENT [None]
